FAERS Safety Report 15587322 (Version 1)
Quarter: 2018Q4

REPORT INFORMATION
  Report Type: Spontaneous
  Country: US (occurrence: US)
  Receive Date: 20181105
  Receipt Date: 20181105
  Transmission Date: 20190205
  Serious: Yes (Other)
  Sender: FDA-Public Use
  Company Number: US-PFIZER INC-K200800070

PATIENT
  Age: 46 Year
  Sex: Female
  Weight: 56.69 kg

DRUGS (2)
  1. BICILLIN L-A [Suspect]
     Active Substance: PENICILLIN G BENZATHINE
     Indication: LYME DISEASE
     Dosage: 1.2 MILLION UNITS, TWO TIMES A WEEK
     Dates: start: 200710, end: 200711
  2. ATIVAN [Concomitant]
     Active Substance: LORAZEPAM
     Dosage: UNK

REACTIONS (3)
  - Headache [Recovering/Resolving]
  - Gastric disorder [Unknown]
  - Mass [Not Recovered/Not Resolved]

NARRATIVE: CASE EVENT DATE: 200711
